FAERS Safety Report 24028638 (Version 1)
Quarter: 2024Q2

REPORT INFORMATION
  Report Type: Spontaneous
  Country: US (occurrence: None)
  Receive Date: 20240628
  Receipt Date: 20240628
  Transmission Date: 20240715
  Serious: No
  Sender: FDA-Public Use
  Company Number: None

PATIENT
  Sex: Male

DRUGS (1)
  1. BALVERSA [Suspect]
     Active Substance: ERDAFITINIB
     Dosage: 8MG DAILY ORAL?
     Route: 048
     Dates: start: 202404, end: 20240603

REACTIONS (3)
  - Staphylococcal infection [None]
  - Haematological infection [None]
  - Therapy interrupted [None]
